FAERS Safety Report 8105314-X (Version None)
Quarter: 2012Q1

REPORT INFORMATION
  Report Type: 
  Country: None (occurrence: None)
  Receive Date: 20120201
  Receipt Date: 20120124
  Transmission Date: 20120608
  Serious: Yes (Other)
  Sender: FDA-Public Use
  Company Number: PHHY2012NL006337

PATIENT
  Sex: Male

DRUGS (3)
  1. ZOMETA [Suspect]
     Indication: PROSTATE CANCER METASTATIC
     Dosage: 4 MG/5 ML, PER 8 WEEKS
     Route: 042
  2. ZOMETA [Suspect]
     Dosage: 4 MG/5 ML, PER 8 WEEKS
     Route: 042
     Dates: start: 20111124, end: 20111124
  3. ZOMETA [Suspect]
     Dosage: 4 MG/5 ML, PER 8 WEEKS
     Route: 042
     Dates: start: 20110606

REACTIONS (1)
  - TERMINAL STATE [None]
